FAERS Safety Report 9654742 (Version 1)
Quarter: 2013Q4

REPORT INFORMATION
  Report Type: Spontaneous
  Country: US (occurrence: US)
  Receive Date: 20131029
  Receipt Date: 20131029
  Transmission Date: 20140711
  Serious: No
  Sender: FDA-Public Use
  Company Number: US-PURDUE-USA-2012-0086815

PATIENT
  Age: 35 Year
  Sex: Female

DRUGS (6)
  1. OXYCODONE HYDROCHLORIDE (SIMILAR TO NDA 20-553) [Suspect]
     Indication: FIBROMYALGIA
     Dosage: 5/325MG , 2 TABLETS Q4- 6H PRN
  2. OXYCODONE HYDROCHLORIDE (SIMILAR TO NDA 20-553) [Suspect]
     Indication: CROHN^S DISEASE
  3. BUDESONIDE [Concomitant]
     Indication: PRODUCT USED FOR UNKNOWN INDICATION
  4. PENTASA [Concomitant]
     Indication: PRODUCT USED FOR UNKNOWN INDICATION
  5. TYLENOL W/CODEINE [Concomitant]
     Indication: MIGRAINE
  6. FIORICET [Concomitant]
     Indication: MIGRAINE

REACTIONS (1)
  - Pain [Unknown]
